FAERS Safety Report 15794105 (Version 2)
Quarter: 2019Q1

REPORT INFORMATION
  Report Type: Spontaneous
  Country: US (occurrence: US)
  Receive Date: 20190107
  Receipt Date: 20190320
  Transmission Date: 20190417
  Serious: Yes (Death, Other)
  Sender: FDA-Public Use
  Company Number: US-PFIZER INC-2016478769

PATIENT
  Age: 70 Year
  Sex: Male
  Weight: 76 kg

DRUGS (17)
  1. LASIX [Concomitant]
     Active Substance: FUROSEMIDE
     Dosage: 120 MG, DAILY (TAKE 3 TABLETS (120 MG TOTAL) BY MOUTH DAILY)
     Route: 048
  2. VENTOLIN HFA [Concomitant]
     Active Substance: ALBUTEROL SULFATE
     Dosage: UNK UNK, AS NEEDED (INHALE 2 PUFFS INTO LUNGS EVERY 12 HOURS AS NEEDED)
  3. SPIRONOLACTONE. [Concomitant]
     Active Substance: SPIRONOLACTONE
     Indication: OEDEMA PERIPHERAL
     Dosage: 25 MG, 1X/DAY
     Route: 048
     Dates: start: 20181205
  4. K-DUR,KLOR-CON [Concomitant]
     Dosage: 40 MEQ, DAILY
     Route: 048
  5. CENTRUM SILVER [Concomitant]
     Active Substance: MINERALS\VITAMINS
     Dosage: 1 DF, DAILY (TAKE 1 TABLET BY MOUTH DAILY)
     Route: 048
  6. TRAVATAN [Concomitant]
     Active Substance: TRAVOPROST
     Dosage: UNK UNK, DAILY (PLACE 1 DROP INTO LEFT EYE NIGHT AT BED TIME)
     Route: 047
  7. ZONISAMIDE. [Concomitant]
     Active Substance: ZONISAMIDE
     Indication: ESSENTIAL TREMOR
     Dosage: 100 MG, 1X/DAY (AT NIGHT)
     Route: 048
     Dates: start: 2017
  8. REMODULIN [Concomitant]
     Active Substance: TREPROSTINIL
     Indication: PULMONARY HYPERTENSION
  9. REMODULIN [Concomitant]
     Active Substance: TREPROSTINIL
     Indication: DIARRHOEA
     Dosage: 2 UNK, UNK
  10. PLO [Concomitant]
     Dosage: UNK UNK, AS NEEDED (APPLY TO AFFECTED FOUR TIMES DAILY AS NEEDED)
  11. REVATIO [Suspect]
     Active Substance: SILDENAFIL CITRATE
     Indication: PULMONARY HYPERTENSION
     Dosage: 20 MG, 3X/DAY (1 TABLET 3 TIMES A DAY)
     Route: 048
     Dates: end: 20181216
  12. FUROSEMIDE. [Concomitant]
     Active Substance: FUROSEMIDE
     Indication: FLUID RETENTION
     Dosage: 40 MG, 3X/DAY
     Dates: start: 2015
  13. TRACLEER [Concomitant]
     Active Substance: BOSENTAN
     Indication: PULMONARY HYPERTENSION
     Dosage: 125 MG, 2X/DAY (TAKE 1 TABLET (125 MG TOTAL) BY MOUTH 2 (TWO) TIMES A DAY)
     Route: 048
  14. POTASSIUM [Concomitant]
     Active Substance: POTASSIUM
     Dosage: 20 MEQ, 1X/DAY
     Dates: start: 2015
  15. ALPHAGAN P [Concomitant]
     Active Substance: BRIMONIDINE TARTRATE
     Dosage: UNK UNK, 2X/DAY (2 TWO TIMES A DAY. 1DROP IN EYE)
     Route: 047
  16. REMODULIN [Concomitant]
     Active Substance: TREPROSTINIL
     Indication: PAIN IN JAW
     Dosage: UNK (5MG/ML-GETS INFUSION RATE AT 0.022ML/HR. 20.0 NANOGRAMS PER KG/MIN)
     Route: 058
  17. REMODULIN [Concomitant]
     Active Substance: TREPROSTINIL
     Indication: WEIGHT DECREASED

REACTIONS (3)
  - Death [Fatal]
  - Hypotension [Unknown]
  - Intentional product use issue [Unknown]

NARRATIVE: CASE EVENT DATE: 2015
